FAERS Safety Report 18775190 (Version 1)
Quarter: 2021Q1

REPORT INFORMATION
  Report Type: Other
  Country: DE (occurrence: DE)
  Receive Date: 20210122
  Receipt Date: 20210122
  Transmission Date: 20210419
  Serious: Yes (Congenital Anomaly, Other)
  Sender: FDA-Public Use
  Company Number: DE-MACLEODS PHARMA UK LTD-MAC2021029829

PATIENT

DRUGS (4)
  1. EUTHYROX [Concomitant]
     Active Substance: LEVOTHYROXINE SODIUM
     Indication: THYROID HORMONE REPLACEMENT THERAPY
     Dosage: 150 [MICROGRAM/DAY (BIS 112 MICROGRAM/DAY) ], 0. ? 12.3. GESTATIONAL WEEK
     Route: 064
     Dates: start: 20190615, end: 20190910
  2. ESCITALOPRAM [Suspect]
     Active Substance: ESCITALOPRAM OXALATE
     Indication: PRODUCT USED FOR UNKNOWN INDICATION
     Dosage: 5 MILLIGRAM, QD, 0. ? 4.3. GESTATIONAL WEEK
     Route: 064
     Dates: start: 20190615, end: 20190716
  3. GABAPENTIN. [Suspect]
     Active Substance: GABAPENTIN
     Indication: PRODUCT USED FOR UNKNOWN INDICATION
     Dosage: 900 MICROGRAM, QD, 300?0?600 MG, 0. ? 4.3. GESTATIONAL WEEK
     Route: 064
     Dates: start: 20190615, end: 20190716
  4. UTROGEST [Concomitant]
     Active Substance: PROGESTERONE
     Indication: HAEMORRHAGE IN PREGNANCY
     Dosage: 100 MILLIGRAM, BID (100?0?100), 6.3. ? 6.5. GESTATIONAL WEEK
     Route: 064
     Dates: start: 20190730, end: 20190801

REACTIONS (4)
  - Foetal exposure during pregnancy [Unknown]
  - Gastroschisis [Unknown]
  - Congenital absence of vertebra [Unknown]
  - Subdural hygroma [Unknown]
